FAERS Safety Report 23031880 (Version 1)
Quarter: 2023Q4

REPORT INFORMATION
  Report Type: Spontaneous
  Country: CN (occurrence: CN)
  Receive Date: 20231005
  Receipt Date: 20231005
  Transmission Date: 20240109
  Serious: Yes (Other)
  Sender: FDA-Public Use
  Company Number: CN-009507513-2309CHN009638

PATIENT
  Age: 97 Year
  Sex: Male
  Weight: 70 kg

DRUGS (1)
  1. CILASTATIN SODIUM\IMIPENEM [Suspect]
     Active Substance: CILASTATIN SODIUM\IMIPENEM
     Indication: Pneumonia
     Dosage: 0.5 G, TID
     Route: 041
     Dates: start: 20230916, end: 20230918

REACTIONS (9)
  - Epilepsy [Recovered/Resolved]
  - Epilepsy [Recovering/Resolving]
  - Epilepsy [Recovering/Resolving]
  - Oxygen saturation decreased [Recovered/Resolved]
  - Oxygen saturation decreased [Unknown]
  - Oxygen saturation decreased [Unknown]
  - Trismus [Recovered/Resolved]
  - Trismus [Unknown]
  - Trismus [Unknown]

NARRATIVE: CASE EVENT DATE: 20230918
